FAERS Safety Report 17591563 (Version 1)
Quarter: 2020Q1

REPORT INFORMATION
  Report Type: Spontaneous
  Country: US (occurrence: US)
  Receive Date: 20200325
  Receipt Date: 20200325
  Transmission Date: 20200409
  Serious: No
  Sender: FDA-Public Use
  Company Number: None

PATIENT
  Age: 65 Year
  Sex: Female
  Weight: 75.2 kg

DRUGS (3)
  1. BENDAMUSTINE HYDROCHLORIDE. [Suspect]
     Active Substance: BENDAMUSTINE HYDROCHLORIDE
     Dates: end: 20200225
  2. RITUXIMAB (MOAB C2B8 ANTI CD20, CHIMERIC) [Suspect]
     Active Substance: RITUXIMAB
     Dates: end: 20200224
  3. ACALABRUTINIB. [Suspect]
     Active Substance: ACALABRUTINIB
     Dates: end: 20200322

REACTIONS (5)
  - Jaundice [None]
  - Liver function test increased [None]
  - Neutropenia [None]
  - Blood bilirubin increased [None]
  - Therapy cessation [None]

NARRATIVE: CASE EVENT DATE: 20200323
